FAERS Safety Report 6263453-2 (Version None)
Quarter: 2009Q3

REPORT INFORMATION
  Report Type: 
  Country: None (occurrence: None)
  Receive Date: 20090710
  Receipt Date: 20090331
  Transmission Date: 20100115
  Serious: No
  Sender: FDA-Public Use
  Company Number: A0771868A

PATIENT
  Age: 60 Year
  Sex: Male
  Weight: 65.9 kg

DRUGS (2)
  1. FLOVENT [Suspect]
     Indication: DRUG USE FOR UNKNOWN INDICATION
     Dosage: 220MCG VARIABLE DOSE
     Route: 055
  2. UNKNOWN [Concomitant]

REACTIONS (2)
  - LARYNGITIS [None]
  - THROAT IRRITATION [None]
